FAERS Safety Report 21346419 (Version 2)
Quarter: 2022Q3

REPORT INFORMATION
  Report Type: Spontaneous
  Country: CN (occurrence: CN)
  Receive Date: 20220917
  Receipt Date: 20220929
  Transmission Date: 20221027
  Serious: Yes (Life-Threatening, Hospitalization, Disabling, Other)
  Sender: FDA-Public Use
  Company Number: None

PATIENT
  Age: 28 Year
  Sex: Female

DRUGS (2)
  1. CEFUROXIME AXETIL [Suspect]
     Active Substance: CEFUROXIME AXETIL
     Indication: Pelvic inflammatory disease
     Dosage: UNK
     Route: 042
     Dates: start: 201504, end: 2015
  2. METRONIDAZOLE [Suspect]
     Active Substance: METRONIDAZOLE
     Indication: Pelvic inflammatory disease
     Dosage: UNK
     Route: 042
     Dates: start: 201504, end: 2015

REACTIONS (12)
  - Toxic epidermal necrolysis [Recovered/Resolved]
  - Atrophy of globe [Not Recovered/Not Resolved]
  - Vitreous prolapse [Recovered/Resolved]
  - Retinal detachment [Recovered/Resolved]
  - Scar [Recovered/Resolved]
  - Conjunctival disorder [Recovered/Resolved]
  - Corneal opacity [Recovered/Resolved]
  - Eyelash changes [Unknown]
  - Eye inflammation [Recovered/Resolved with Sequelae]
  - Corneal graft rejection [Recovered/Resolved]
  - Choroidal detachment [Recovered/Resolved]
  - Corneal perforation [Recovered/Resolved]

NARRATIVE: CASE EVENT DATE: 20150101
